FAERS Safety Report 19609735 (Version 1)
Quarter: 2021Q3

REPORT INFORMATION
  Report Type: Spontaneous
  Country: US (occurrence: US)
  Receive Date: 20210726
  Receipt Date: 20210726
  Transmission Date: 20211014
  Serious: Yes (Hospitalization, Other)
  Sender: FDA-Public Use
  Company Number: US-EPICPHARMA-US-2021EPCLIT00749

PATIENT
  Age: 41 Year
  Sex: Male

DRUGS (4)
  1. THIAMINE. [Interacting]
     Active Substance: THIAMINE
     Indication: VITAMIN B1 DEFICIENCY
     Route: 042
  2. THIAMINE. [Interacting]
     Active Substance: THIAMINE
     Route: 048
  3. SODIUM BICARBONATE. [Interacting]
     Active Substance: SODIUM BICARBONATE
     Indication: LACTIC ACIDOSIS
     Route: 065
  4. METFORMIN HYDROCHLORIDE. [Suspect]
     Active Substance: METFORMIN HYDROCHLORIDE
     Indication: TYPE 2 DIABETES MELLITUS
     Route: 065

REACTIONS (3)
  - Lactic acidosis [Recovered/Resolved]
  - Vitamin B1 deficiency [Recovering/Resolving]
  - Toxicity to various agents [Recovered/Resolved]
